FAERS Safety Report 18568712 (Version 1)
Quarter: 2020Q4

REPORT INFORMATION
  Report Type: Spontaneous
  Country: US (occurrence: US)
  Receive Date: 20201202
  Receipt Date: 20201202
  Transmission Date: 20210114
  Serious: Yes (Death, Disabling, Other)
  Sender: FDA-Public Use
  Company Number: US-SA-2020SA344171

PATIENT

DRUGS (3)
  1. GOLD BOND ORIGINAL STRENGTH POWDER [Suspect]
     Active Substance: MENTHOL\ZINC OXIDE
     Dosage: UNK
     Route: 048
  2. GOLD BOND ORIGINAL STRENGTH POWDER [Suspect]
     Active Substance: MENTHOL\ZINC OXIDE
     Dosage: UNK
     Route: 055
  3. GOLD BOND ORIGINAL STRENGTH POWDER [Suspect]
     Active Substance: MENTHOL\ZINC OXIDE
     Dosage: UNK
     Dates: start: 1980, end: 2000

REACTIONS (7)
  - Mesothelioma [Fatal]
  - Oncologic complication [Fatal]
  - Occupational exposure to product [Unknown]
  - Injury [Fatal]
  - Loss of personal independence in daily activities [Unknown]
  - Accidental exposure to product [Unknown]
  - Anhedonia [Unknown]

NARRATIVE: CASE EVENT DATE: 1968
